FAERS Safety Report 4930952-2 (Version None)
Quarter: 2006Q1

REPORT INFORMATION
  Report Type: 
  Country: None (occurrence: None)
  Receive Date: 20060227
  Receipt Date: 20060214
  Transmission Date: 20060701
  Serious: Yes (Hospitalization)
  Sender: FDA-Public Use
  Company Number: 222185

PATIENT
  Age: 63 Year
  Sex: Female

DRUGS (3)
  1. MABTHERA(RITUXIMAB) CONC FOR SOLUTION FOR INFUSION [Suspect]
     Indication: RHEUMATOID ARTHRITIS
     Dosage: 1000 MG INTRAVENOUS
     Route: 042
     Dates: start: 20060130
  2. METHOTREXATE [Concomitant]
  3. ANTIFUNGAL AGENT NOS [Concomitant]

REACTIONS (1)
  - ASTHMA [None]
